FAERS Safety Report 20084880 (Version 6)
Quarter: 2021Q4

REPORT INFORMATION
  Report Type: Spontaneous
  Country: US (occurrence: US)
  Receive Date: 20211118
  Receipt Date: 20211211
  Transmission Date: 20220303
  Serious: Yes (Other)
  Sender: FDA-Public Use
  Company Number: US-UNITED THERAPEUTICS-UNT-2021-023076

PATIENT
  Sex: Female
  Weight: 92.517 kg

DRUGS (8)
  1. ORENITRAM [Suspect]
     Active Substance: TREPROSTINIL
     Indication: Pulmonary arterial hypertension
     Dosage: UNK
     Route: 048
     Dates: start: 20211015
  2. ORENITRAM [Suspect]
     Active Substance: TREPROSTINIL
     Dosage: 21 MG, TID
     Route: 048
     Dates: start: 2021, end: 2021
  3. ORENITRAM [Suspect]
     Active Substance: TREPROSTINIL
     Dosage: 18 MG, TID
     Route: 048
     Dates: start: 2021, end: 20211111
  4. ORENITRAM [Suspect]
     Active Substance: TREPROSTINIL
     Dosage: 5 MG, Q8H
     Route: 048
     Dates: start: 2021, end: 2021
  5. ORENITRAM [Suspect]
     Active Substance: TREPROSTINIL
     Indication: Pulmonary arterial hypertension
     Dosage: UNK
     Route: 048
  6. ORENITRAM [Suspect]
     Active Substance: TREPROSTINIL
     Indication: Pulmonary arterial hypertension
     Dosage: UNK
     Route: 048
  7. OPSUMIT [Concomitant]
     Active Substance: MACITENTAN
     Indication: Product used for unknown indication
     Dosage: UNK
     Route: 065
  8. ADEMPAS [Concomitant]
     Active Substance: RIOCIGUAT
     Indication: Product used for unknown indication
     Dosage: UNK
     Route: 065

REACTIONS (7)
  - Loss of consciousness [Unknown]
  - Nausea [Unknown]
  - Dizziness [Unknown]
  - Oxygen consumption increased [Unknown]
  - Abdominal discomfort [Unknown]
  - Impaired self-care [Unknown]
  - Drug intolerance [Unknown]

NARRATIVE: CASE EVENT DATE: 20210101
